FAERS Safety Report 5663281-2 (Version None)
Quarter: 2008Q1

REPORT INFORMATION
  Report Type: 
  Country: None (occurrence: None)
  Receive Date: 20080313
  Receipt Date: 20080310
  Transmission Date: 20080703
  Serious: Yes (Hospitalization)
  Sender: FDA-Public Use
  Company Number: ES-TEVA-168556ISR

PATIENT
  Age: 82 Year
  Sex: Male

DRUGS (3)
  1. AZILECT [Suspect]
     Indication: PARKINSON'S DISEASE
     Route: 048
     Dates: start: 20070712, end: 20070819
  2. CLOMIPRAMINE HYDROCHLORIDE [Suspect]
     Indication: PARKINSON'S DISEASE
     Route: 048
     Dates: start: 20010101, end: 20070819
  3. STALEVO 100 [Suspect]
     Indication: PARKINSON'S DISEASE
     Dates: start: 20070712, end: 20070819

REACTIONS (1)
  - HEPATITIS TOXIC [None]
